FAERS Safety Report 17389390 (Version 2)
Quarter: 2020Q2

REPORT INFORMATION
  Report Type: Spontaneous
  Country: US (occurrence: US)
  Receive Date: 20200207
  Receipt Date: 20200408
  Transmission Date: 20200713
  Serious: Yes (Hospitalization, Other)
  Sender: FDA-Public Use
  Company Number: US-DRREDDYS-USA/USA/20/0119296

PATIENT
  Age: 45 Year
  Sex: Female

DRUGS (3)
  1. MYCOPHENOLIC ACID. [Suspect]
     Active Substance: MYCOPHENOLIC ACID
     Indication: IMMUNOSUPPRESSION
  2. TACROLIMUS. [Suspect]
     Active Substance: TACROLIMUS
     Indication: IMMUNOSUPPRESSION
  3. PREDNISONE. [Suspect]
     Active Substance: PREDNISONE
     Indication: IMMUNOSUPPRESSION

REACTIONS (5)
  - Colon adenoma [Recovering/Resolving]
  - Anaemia [Recovering/Resolving]
  - Haemorrhoids [Recovering/Resolving]
  - Malacoplakia gastrointestinal [Recovering/Resolving]
  - BK virus infection [Unknown]
